FAERS Safety Report 15204219 (Version 2)
Quarter: 2021Q4

REPORT INFORMATION
  Report Type: Report from Study
  Country: FR (occurrence: FR)
  Receive Date: 20180726
  Receipt Date: 20211020
  Transmission Date: 20220303
  Serious: Yes (Other)
  Sender: FDA-Public Use
  Company Number: None

PATIENT
  Age: 13 Year
  Sex: Male

DRUGS (14)
  1. PREDNISONE [Suspect]
     Active Substance: PREDNISONE
     Indication: Acute lymphocytic leukaemia
     Dosage: 100 MG, UNK (DOSAGE FORM: UNKNOWN)
     Route: 048
     Dates: start: 20161129, end: 20161228
  2. METHOTREXATE [Suspect]
     Active Substance: METHOTREXATE
     Indication: Acute lymphocytic leukaemia
     Dosage: 15 MILLIGRAM (DOSAGE FORM: UNKNOWN)
     Route: 037
     Dates: start: 20161129
  3. CYTARABINE [Suspect]
     Active Substance: CYTARABINE
     Indication: Acute lymphocytic leukaemia
     Dosage: 30 MILLIGRAM (DOSAGE FORM: UNKNOWN)
     Route: 037
     Dates: start: 20161202
  4. CYTARABINE [Suspect]
     Active Substance: CYTARABINE
     Dosage: 110 MILLIGRAM (DOSAGE FORM: UNKNOWN)
     Route: 042
     Dates: start: 20161202
  5. CYCLOPHOSPHAMIDE [Suspect]
     Active Substance: CYCLOPHOSPHAMIDE
     Indication: Acute lymphocytic leukaemia
     Dosage: 1640 MILLIGRAM (DOSAGE FORM: UNKNOWN)
     Route: 042
     Dates: start: 20170621, end: 20170627
  6. CYCLOPHOSPHAMIDE [Suspect]
     Active Substance: CYCLOPHOSPHAMIDE
     Dosage: 1500 MILLIGRAM (DOSAGE FORM: UNKNOWN)
     Route: 042
  7. DEXAMETHASONE [Suspect]
     Active Substance: DEXAMETHASONE
     Indication: Acute lymphocytic leukaemia
     Dosage: 16.5 MILLIGRAM (DOSAGE FORM: UNKNOWN)
     Route: 048
     Dates: start: 20170530
  8. DEXAMETHASONE [Suspect]
     Active Substance: DEXAMETHASONE
     Dosage: 96 MILLIGRAM (DOSAGE FORM: UNKNOWN)
     Route: 048
     Dates: start: 20170317, end: 20170322
  9. VINCRISTINE [Suspect]
     Active Substance: VINCRISTINE
     Indication: Acute lymphocytic leukaemia
     Dosage: 2 MILLIGRAM (DOSAGE FORM: UNKNOWN)
     Route: 042
     Dates: start: 20161130
  10. DAUNORUBICIN [Suspect]
     Active Substance: DAUNORUBICIN
     Indication: Acute lymphocytic leukaemia
     Dosage: 65 MILLIGRAM (DOSAGE FORM: UNKNOWN)
     Route: 042
     Dates: start: 20161130, end: 20161222
  11. DOXORUBICIN HYDROCHLORIDE [Suspect]
     Active Substance: DOXORUBICIN HYDROCHLORIDE
     Indication: Acute lymphocytic leukaemia
     Dosage: 42 MILLIGRAM
     Route: 042
     Dates: start: 20170530
  12. PEGASPARGASE [Suspect]
     Active Substance: PEGASPARGASE
     Indication: Acute lymphocytic leukaemia
     Dosage: 4200 INTERNATIONAL UNIT
     Route: 042
     Dates: start: 20161205
  13. MERCAPTOPURINE [Suspect]
     Active Substance: MERCAPTOPURINE
     Indication: Acute lymphocytic leukaemia
     Dosage: DOSAGE FORM: UNKNOWN
     Route: 065
  14. HYDROCORTISONE [Suspect]
     Active Substance: HYDROCORTISONE
     Indication: Acute lymphocytic leukaemia
     Dosage: 15 MILLIGRAM (DOSAGE FORM: UNSPECIFIED)
     Route: 037
     Dates: start: 20161202

REACTIONS (3)
  - Hypertriglyceridaemia [Recovered/Resolved]
  - Off label use [Unknown]
  - Product use in unapproved indication [Unknown]

NARRATIVE: CASE EVENT DATE: 20170807
